FAERS Safety Report 8376109-7 (Version None)
Quarter: 2012Q2

REPORT INFORMATION
  Report Type: 
  Country: None (occurrence: None)
  Receive Date: 20120522
  Receipt Date: 20120511
  Transmission Date: 20120825
  Serious: Yes (Hospitalization, Other)
  Sender: FDA-Public Use
  Company Number: US-SANOFI-AVENTIS-2012SA027655

PATIENT
  Age: 58 Year
  Sex: Female
  Weight: 46.26 kg

DRUGS (11)
  1. CALCIUM CARBONATE [Concomitant]
  2. PLAVIX [Suspect]
     Dates: end: 20120419
  3. PLAVIX [Suspect]
     Indication: ANTIPLATELET THERAPY
     Dates: end: 20120419
  4. PRILOSEC [Concomitant]
     Dates: end: 20110101
  5. ZANTAC [Concomitant]
  6. CARDIAC THERAPY [Concomitant]
  7. PROTONIX [Concomitant]
  8. COLCHICINE [Concomitant]
  9. CARAFATE [Concomitant]
  10. PLAVIX [Suspect]
     Indication: CHEST PAIN
     Dates: end: 20120419
  11. PLAVIX [Suspect]
     Dates: end: 20120419

REACTIONS (20)
  - TRANSIENT ISCHAEMIC ATTACK [None]
  - MASS [None]
  - GASTRIC ULCER [None]
  - EATING DISORDER [None]
  - COLITIS [None]
  - ANAEMIA [None]
  - ERUCTATION [None]
  - GASTROOESOPHAGEAL REFLUX DISEASE [None]
  - ABDOMINAL DISTENSION [None]
  - DIARRHOEA [None]
  - VASCULAR OCCLUSION [None]
  - CROHN'S DISEASE [None]
  - CONSTIPATION [None]
  - CONDITION AGGRAVATED [None]
  - ASTHENIA [None]
  - WEIGHT DECREASED [None]
  - IRRITABLE BOWEL SYNDROME [None]
  - ABDOMINAL PAIN UPPER [None]
  - HIATUS HERNIA [None]
  - GASTROINTESTINAL DISORDER [None]
